FAERS Safety Report 18547560 (Version 3)
Quarter: 2021Q2

REPORT INFORMATION
  Report Type: Spontaneous
  Country: CA (occurrence: CA)
  Receive Date: 20201125
  Receipt Date: 20210610
  Transmission Date: 20210717
  Serious: Yes (Other)
  Sender: FDA-Public Use
  Company Number: CA-PFIZER INC-2020462880

PATIENT
  Age: 26 Year
  Sex: Male

DRUGS (2)
  1. XELJANZ [Suspect]
     Active Substance: TOFACITINIB CITRATE
     Indication: COLITIS ULCERATIVE
     Dosage: 10 MG, 2X/DAY
     Route: 048
     Dates: start: 20200911, end: 202105
  2. PENTASA [Concomitant]
     Active Substance: MESALAMINE
     Dosage: 4 MG, DAILY

REACTIONS (4)
  - Haematochezia [Unknown]
  - Weight increased [Unknown]
  - COVID-19 [Unknown]
  - Condition aggravated [Unknown]

NARRATIVE: CASE EVENT DATE: 2020
